FAERS Safety Report 17098927 (Version 1)
Quarter: 2019Q4

REPORT INFORMATION
  Report Type: Spontaneous
  Country: US (occurrence: US)
  Receive Date: 20191130
  Receipt Date: 20191130
  Transmission Date: 20200122
  Serious: Yes (Other)
  Sender: FDA-Public Use
  Company Number: None

PATIENT
  Age: 52 Year
  Sex: Male
  Weight: 105.3 kg

DRUGS (4)
  1. LISINOPRIL, ETC. [Concomitant]
  2. GLIPIZIDE. [Concomitant]
     Active Substance: GLIPIZIDE
  3. BAYER ASPIRINS [Concomitant]
  4. RANITIDINE. [Suspect]
     Active Substance: RANITIDINE
     Indication: DYSPEPSIA
     Dates: start: 20170810, end: 20190409

REACTIONS (2)
  - Headache [None]
  - Alopecia [None]

NARRATIVE: CASE EVENT DATE: 20191127
